FAERS Safety Report 5892203-4 (Version None)
Quarter: 2008Q3

REPORT INFORMATION
  Report Type: 
  Country: None (occurrence: None)
  Receive Date: 20080922
  Receipt Date: 20080916
  Transmission Date: 20090109
  Serious: Yes (Hospitalization)
  Sender: FDA-Public Use
  Company Number: US-GENENTECH-264382

PATIENT
  Sex: Female
  Weight: 163.27 kg

DRUGS (14)
  1. XOLAIR [Suspect]
     Indication: SINUSITIS
     Dosage: 375 MG, Q2W
     Route: 058
     Dates: start: 20080430
  2. XOLAIR [Suspect]
     Indication: ASTHMA
  3. ALBUTEROL [Concomitant]
     Indication: DRUG USE FOR UNKNOWN INDICATION
     Dosage: UNK
  4. ALLEGRA [Concomitant]
     Indication: DRUG USE FOR UNKNOWN INDICATION
     Dosage: 180 MG, QD
  5. PRILOSEC [Concomitant]
     Indication: DRUG USE FOR UNKNOWN INDICATION
     Dosage: 40 MG, QD
  6. EFFEXOR [Concomitant]
     Indication: DRUG USE FOR UNKNOWN INDICATION
  7. TRIAMTERENE AND HYDROCHLOROTHIAZIDE [Concomitant]
     Indication: DRUG USE FOR UNKNOWN INDICATION
  8. ASMANEX TWISTHALER [Concomitant]
     Indication: DRUG USE FOR UNKNOWN INDICATION
     Dosage: UNK
  9. CEFTIN [Concomitant]
     Indication: DRUG USE FOR UNKNOWN INDICATION
     Dosage: 500 MG, BID
  10. BACTROBAN [Concomitant]
     Indication: DRUG USE FOR UNKNOWN INDICATION
  11. OPTIVAR [Concomitant]
     Indication: DRUG USE FOR UNKNOWN INDICATION
     Dosage: UNK
  12. DOXYCYCLINE HYCLATE [Concomitant]
     Indication: DRUG USE FOR UNKNOWN INDICATION
     Dosage: 100 MG, BID
  13. DIFLUCAN [Concomitant]
     Indication: DRUG USE FOR UNKNOWN INDICATION
     Dosage: 150 MG, QD
  14. MEDROL [Concomitant]
     Indication: DRUG USE FOR UNKNOWN INDICATION
     Dosage: 8 MG, UNK

REACTIONS (1)
  - OEDEMA PERIPHERAL [None]
